FAERS Safety Report 10373653 (Version 1)
Quarter: 2014Q1

REPORT INFORMATION
  Report Type: Spontaneous
  Country: US (occurrence: None)
  Receive Date: 20140306
  Receipt Date: 20140306
  Transmission Date: 20141002
  Serious: Yes (Hospitalization)
  Sender: FDA-Public Use
  Company Number: 163-21880-13033394

PATIENT
  Age: 86 Year
  Sex: Female

DRUGS (8)
  1. REVLIMID (LENALIDOMIDE) (CAPSULES) [Suspect]
     Indication: MYELODYSPLASTIC SYNDROME
     Route: 048
     Dates: start: 20130120
  2. CEFTRIAXONE [Concomitant]
  3. AZITHROMCYIN [Concomitant]
  4. ALBUTEROL (SALBUTAMOL) [Concomitant]
  5. ATROVENT (IPRATROPIUM BROMIDE) [Concomitant]
  6. TAMIFLU (OSELTAMVIR) [Concomitant]
  7. DOXYXYXLINE FOR INJECTION (MANUFACTURER UNKNOWN) DOXYCYCLINE) [Concomitant]
  8. ROBITUSSIN A-C (ROBITUSSIN A-C /OLD FORM) [Concomitant]

REACTIONS (2)
  - Respiratory failure [None]
  - Respiratory syncytial virus infection [None]
